FAERS Safety Report 5092812-9 (Version None)
Quarter: 2006Q3

REPORT INFORMATION
  Report Type: 
  Country: None (occurrence: None)
  Receive Date: 20060830
  Receipt Date: 20060823
  Transmission Date: 20061208
  Serious: Yes (Other)
  Sender: FDA-Public Use
  Company Number: US-GLAXOSMITHKLINE-A0617791A

PATIENT
  Sex: Male

DRUGS (2)
  1. EQUATE NTS [Suspect]
     Indication: DRUG USE FOR UNKNOWN INDICATION
     Route: 062
  2. NICOTINE [Concomitant]

REACTIONS (5)
  - CIRCULATORY COLLAPSE [None]
  - DIZZINESS [None]
  - HEADACHE [None]
  - INTENTIONAL DRUG MISUSE [None]
  - SPEECH DISORDER [None]
